FAERS Safety Report 19063996 (Version 3)
Quarter: 2021Q2

REPORT INFORMATION
  Report Type: Report from Study
  Country: None (occurrence: US)
  Receive Date: 20210326
  Receipt Date: 20210615
  Transmission Date: 20210717
  Serious: Yes (Hospitalization)
  Sender: FDA-Public Use
  Company Number: US-ABBVIE-21K-163-3826667-00

PATIENT
  Sex: Male

DRUGS (4)
  1. HUMIRA [Suspect]
     Active Substance: ADALIMUMAB
     Indication: CROHN^S DISEASE
     Route: 058
     Dates: start: 2018, end: 2021
  2. HUMIRA [Suspect]
     Active Substance: ADALIMUMAB
     Indication: CROHN^S DISEASE
     Dosage: DAY 1
     Route: 058
     Dates: start: 20210408, end: 20210408
  3. HUMIRA [Suspect]
     Active Substance: ADALIMUMAB
     Indication: CROHN^S DISEASE
     Route: 058
     Dates: start: 20210506
  4. HUMIRA [Suspect]
     Active Substance: ADALIMUMAB
     Dosage: DAY 15
     Route: 058
     Dates: start: 20210422, end: 20210422

REACTIONS (24)
  - Malaise [Unknown]
  - Insomnia [Unknown]
  - Anxiety [Not Recovered/Not Resolved]
  - Arthralgia [Not Recovered/Not Resolved]
  - Injection site bruising [Unknown]
  - Fatigue [Unknown]
  - Abdominal pain [Recovering/Resolving]
  - Loss of personal independence in daily activities [Not Recovered/Not Resolved]
  - Diarrhoea haemorrhagic [Recovering/Resolving]
  - Depressed mood [Not Recovered/Not Resolved]
  - Asthenia [Unknown]
  - Decreased appetite [Unknown]
  - Small intestinal obstruction [Recovered/Resolved]
  - Chronic obstructive pulmonary disease [Unknown]
  - Gastrointestinal sounds abnormal [Unknown]
  - Flatulence [Not Recovered/Not Resolved]
  - Muscle spasms [Not Recovered/Not Resolved]
  - Nausea [Unknown]
  - Frequent bowel movements [Recovering/Resolving]
  - Constipation [Recovering/Resolving]
  - Abdominal pain upper [Unknown]
  - Vomiting [Unknown]
  - Abdominal distension [Recovering/Resolving]
  - Fear [Not Recovered/Not Resolved]

NARRATIVE: CASE EVENT DATE: 2020
